FAERS Safety Report 4766358-9 (Version None)
Quarter: 2005Q3

REPORT INFORMATION
  Report Type: 
  Country: None (occurrence: None)
  Receive Date: 20050912
  Receipt Date: 20050823
  Transmission Date: 20060218
  Serious: Yes (Hospitalization, Other)
  Sender: FDA-Public Use
  Company Number: PHNR2005AU01305

PATIENT
  Age: 66 Year
  Sex: Male

DRUGS (7)
  1. CLOZARIL [Suspect]
     Dosage: 0 - 150 MG/DAY
     Dates: start: 20050802, end: 20050801
  2. OSTELIN [Concomitant]
  3. CALTRATE [Concomitant]
  4. LACTULOSE [Concomitant]
  5. ASPIRIN [Concomitant]
  6. THIAMINE [Concomitant]
  7. OMEPRAZOLE [Concomitant]

REACTIONS (7)
  - BRONCHIECTASIS [None]
  - HAEMOPHILUS INFECTION [None]
  - LEUKOPENIA [None]
  - MYOCARDITIS [None]
  - NEUTROPENIA [None]
  - PYREXIA [None]
  - TROPONIN INCREASED [None]
